FAERS Safety Report 8275750-X (Version None)
Quarter: 2012Q2

REPORT INFORMATION
  Report Type: 
  Country: None (occurrence: None)
  Receive Date: 20120410
  Receipt Date: 20120410
  Transmission Date: 20120825
  Serious: Yes (Hospitalization)
  Sender: FDA-Public Use
  Company Number: None

PATIENT
  Age: 76 Year
  Sex: Male
  Weight: 68.9 kg

DRUGS (2)
  1. LISINOPRIL [Suspect]
     Indication: HYPERTENSION
     Dosage: 10 MG BID PO
     Route: 048
     Dates: start: 20110921, end: 20111012
  2. INDOMETHACIN [Suspect]
     Indication: GOUT
     Dosage: 25 MG BID PO
     Route: 048
     Dates: start: 20111002, end: 20111012

REACTIONS (1)
  - RENAL FAILURE ACUTE [None]
